FAERS Safety Report 17662225 (Version 1)
Quarter: 2020Q2

REPORT INFORMATION
  Report Type: Spontaneous
  Country: JP (occurrence: JP)
  Receive Date: 20200413
  Receipt Date: 20200413
  Transmission Date: 20200713
  Serious: Yes (Other)
  Sender: FDA-Public Use
  Company Number: JP-GLAXOSMITHKLINE-JP2018JPN014810

PATIENT
  Age: 48 Year
  Sex: Male
  Weight: 53 kg

DRUGS (11)
  1. TADALAFIL. [Concomitant]
     Active Substance: TADALAFIL
     Dosage: 20 MG, 1D
     Route: 048
  2. SELEXIPAG [Concomitant]
     Active Substance: SELEXIPAG
     Indication: PULMONARY ARTERIAL HYPERTENSION
  3. DOBUTAMINE [Concomitant]
     Active Substance: DOBUTAMINE HYDROCHLORIDE
     Dosage: UNK UNK, Z
  4. VOLIBRIS [Suspect]
     Active Substance: AMBRISENTAN
     Indication: PULMONARY ARTERIAL HYPERTENSION
     Dosage: 235 UNK
     Route: 048
  5. DOPAMIN [Concomitant]
     Dosage: 3 UG, KG/MIN
  6. TADALAFIL. [Concomitant]
     Active Substance: TADALAFIL
     Dosage: 40 MG, 1D
     Route: 048
  7. EPOPROSTENOL SODIUM. [Suspect]
     Active Substance: EPOPROSTENOL SODIUM
     Dosage: 2 NG/KG/MIN
     Route: 041
  8. VOLIBRIS [Suspect]
     Active Substance: AMBRISENTAN
     Dosage: 2.5 MG, 1D
     Route: 048
  9. NITRIC OXIDE. [Concomitant]
     Active Substance: NITRIC OXIDE
     Indication: PULMONARY HYPERTENSION
     Dosage: UNK
  10. DOBUTAMINE [Concomitant]
     Active Substance: DOBUTAMINE HYDROCHLORIDE
     Indication: CARDIAC FAILURE
     Dosage: UNK UNK, Z
  11. DOBUTAMINE [Concomitant]
     Active Substance: DOBUTAMINE HYDROCHLORIDE
     Indication: RIGHT VENTRICULAR FAILURE
     Dosage: UNK UNK, Z

REACTIONS (3)
  - Cardiac failure [Recovered/Resolved]
  - Flushing [Recovered/Resolved]
  - Right ventricular failure [Recovered/Resolved]

NARRATIVE: CASE EVENT DATE: 2017
